FAERS Safety Report 7426869-4 (Version None)
Quarter: 2011Q2

REPORT INFORMATION
  Report Type: 
  Country: None (occurrence: None)
  Receive Date: 20110413
  Receipt Date: 20110323
  Transmission Date: 20111010
  Serious: Yes (Death, Hospitalization)
  Sender: FDA-Public Use
  Company Number: D1100981

PATIENT
  Age: 93 Year
  Sex: Male

DRUGS (6)
  1. JANTOVEN [Suspect]
     Indication: ATRIAL FIBRILLATION
     Dosage: 1 IN 1 D
  2. BLOOD PRESSURE MEDICATION^ (ANTIHYPERSIVES) [Concomitant]
  3. LASIX [Concomitant]
  4. IRON (IRON) [Concomitant]
  5. ZINC (ZINC) [Concomitant]
  6. ASPIRIN [Concomitant]

REACTIONS (8)
  - MYOCARDIAL INFARCTION [None]
  - ASTHENIA [None]
  - ILL-DEFINED DISORDER [None]
  - DIZZINESS [None]
  - LOSS OF CONSCIOUSNESS [None]
  - EPISTAXIS [None]
  - FALL [None]
  - GAIT DISTURBANCE [None]
